FAERS Safety Report 4744379-X (Version None)
Quarter: 2005Q3

REPORT INFORMATION
  Report Type: 
  Country: None (occurrence: None)
  Receive Date: 20050811
  Receipt Date: 20050811
  Transmission Date: 20060218
  Serious: Yes (Other)
  Sender: FDA-Public Use
  Company Number: None

PATIENT
  Age: 46 Year
  Sex: Female
  Weight: 87.771 kg

DRUGS (2)
  1. OXYCONTIN [Suspect]
     Indication: PAIN
     Dosage: 1 PO TID
     Route: 048
     Dates: start: 20050729, end: 20050731
  2. OXYCONTIN [Suspect]
     Dosage: 1 PO TID

REACTIONS (5)
  - EYE SWELLING [None]
  - ORAL PRURITUS [None]
  - PRURITUS [None]
  - RASH [None]
  - SWELLING FACE [None]
